FAERS Safety Report 9781434 (Version 2)
Quarter: 2013Q4

REPORT INFORMATION
  Report Type: Report from Study
  Country: US (occurrence: US)
  Receive Date: 20131224
  Receipt Date: 20131224
  Transmission Date: 20140711
  Serious: Yes (Hospitalization)
  Sender: FDA-Public Use
  Company Number: US-ELI_LILLY_AND_COMPANY-US201307001980

PATIENT
  Age: 74 Year
  Sex: Male
  Weight: 55.7 kg

DRUGS (5)
  1. GEMCITABINE HYDROCHLORIDE [Suspect]
     Indication: PANCREATIC CARCINOMA METASTATIC
     Dosage: 1000 MG, CYCLICAL
     Route: 042
     Dates: start: 20120906
  2. OTHER PHARMA COMPANY INV DRUG [Suspect]
     Indication: PANCREATIC CARCINOMA METASTATIC
     Dosage: 150 ML, 2/W
     Route: 042
     Dates: start: 20120906
  3. OXYCODONE [Concomitant]
     Dosage: UNK
     Dates: start: 20121012, end: 20121102
  4. LISINOPRIL [Concomitant]
     Dosage: UNK
  5. TAMSULOSIN [Concomitant]
     Dosage: UNK
     Dates: start: 20121001

REACTIONS (5)
  - Renal failure acute [Recovered/Resolved]
  - Vomiting [Recovered/Resolved]
  - Nausea [Not Recovered/Not Resolved]
  - Vomiting [Not Recovered/Not Resolved]
  - Renal failure acute [Not Recovered/Not Resolved]
